FAERS Safety Report 5500361-6 (Version None)
Quarter: 2007Q4

REPORT INFORMATION
  Report Type: 
  Country: None (occurrence: None)
  Receive Date: 20071025
  Receipt Date: 20070801
  Transmission Date: 20080405
  Serious: Yes (Hospitalization)
  Sender: FDA-Public Use
  Company Number: FRPFM-E-20070084

PATIENT
  Age: 50 Year
  Sex: Male

DRUGS (8)
  1. NAVELBINE [Suspect]
     Indication: DRUG USE FOR UNKNOWN INDICATION
     Dosage: 40 MG IV
     Route: 042
     Dates: start: 20070423, end: 20070423
  2. HOLOXAN. MFR: NOT SPECIFIED [Suspect]
     Indication: DRUG USE FOR UNKNOWN INDICATION
     Dosage: 1700 G IV
     Route: 042
     Dates: start: 20070423, end: 20070426
  3. NOVANTRONE [Suspect]
     Indication: DRUG USE FOR UNKNOWN INDICATION
     Dosage: 17 MG IV
     Route: 042
     Dates: start: 20070423, end: 20070423
  4. ACUPAN [Suspect]
     Indication: DRUG USE FOR UNKNOWN INDICATION
     Dosage: 80 MG IV
     Route: 042
     Dates: start: 20070504
  5. CLAFORAN [Suspect]
     Indication: DRUG USE FOR UNKNOWN INDICATION
     Dosage: 3 G IV
     Route: 042
     Dates: start: 20070503
  6. BACTRIM [Suspect]
     Indication: DRUG USE FOR UNKNOWN INDICATION
     Dosage: 1 IV
     Route: 042
     Dates: start: 20070503
  7. VANCOMYCIN [Suspect]
     Indication: DRUG USE FOR UNKNOWN INDICATION
     Dosage: 2 G IV
     Route: 042
     Dates: start: 20070503
  8. TRIFLUCAN [Suspect]
     Indication: DRUG USE FOR UNKNOWN INDICATION
     Dosage: 200 MG IV
     Route: 042
     Dates: start: 20070503

REACTIONS (4)
  - GENERAL PHYSICAL HEALTH DETERIORATION [None]
  - MUCOSAL INFLAMMATION [None]
  - STATUS EPILEPTICUS [None]
  - THROMBOCYTOPENIA [None]
